FAERS Safety Report 15558047 (Version 1)
Quarter: 2018Q4

REPORT INFORMATION
  Report Type: Spontaneous
  Country: US (occurrence: US)
  Receive Date: 20181027
  Receipt Date: 20181027
  Transmission Date: 20190205
  Serious: Yes (Other)
  Sender: FDA-Public Use
  Company Number: US-009507513-1810USA009516

PATIENT
  Sex: Female

DRUGS (1)
  1. NEXPLANON [Suspect]
     Active Substance: ETONOGESTREL
     Dosage: 68 MILLIGRAM
     Route: 059
     Dates: start: 20180929

REACTIONS (5)
  - Nausea [Unknown]
  - Vomiting [Unknown]
  - Complication of device removal [Unknown]
  - Abdominal pain [Unknown]
  - Device dislocation [Unknown]

NARRATIVE: CASE EVENT DATE: 201809
